FAERS Safety Report 23644332 (Version 8)
Quarter: 2024Q2

REPORT INFORMATION
  Report Type: Spontaneous
  Country: GR (occurrence: GR)
  Receive Date: 20240318
  Receipt Date: 20240506
  Transmission Date: 20240717
  Serious: No
  Sender: FDA-Public Use
  Company Number: GR-PFIZER INC-PV202400025731

PATIENT
  Age: 13 Year
  Sex: Female

DRUGS (2)
  1. GENOTROPIN [Suspect]
     Active Substance: SOMATROPIN
     Indication: Growth hormone deficiency
     Dosage: 6 DAYS (1 DAY OFF)
     Route: 058
     Dates: start: 2024
  2. GENOTROPIN [Suspect]
     Active Substance: SOMATROPIN
     Dosage: 6 DAYS (1 DAY OFF)
     Route: 058
     Dates: start: 2024

REACTIONS (7)
  - Drug dose omission by device [Unknown]
  - Device defective [Unknown]
  - Device mechanical issue [Unknown]
  - Device difficult to use [Unknown]
  - Device breakage [Unknown]
  - Device issue [Unknown]
  - Product contamination [Unknown]

NARRATIVE: CASE EVENT DATE: 20240201
